FAERS Safety Report 9643780 (Version 1)
Quarter: 2013Q4

REPORT INFORMATION
  Report Type: Spontaneous
  Country: FR (occurrence: None)
  Receive Date: 20131022
  Receipt Date: 20131022
  Transmission Date: 20140711
  Serious: Yes (Other)
  Sender: FDA-Public Use
  Company Number: 1916964

PATIENT
  Age: 49 Year
  Sex: Female

DRUGS (6)
  1. (CARBOPLATIN) [Suspect]
     Indication: OVARIAN CANCER
     Dosage: (1 DAY)
     Route: 042
     Dates: start: 20090302, end: 20090616
  2. (PACLITAXEL EBEWE) [Suspect]
     Indication: OVARIAN CANCER
     Dosage: (1 DAY)
     Route: 042
     Dates: start: 20090302, end: 20090616
  3. (POLARAMINE) [Suspect]
     Indication: PREMEDICATION
     Dosage: 1 DF DOSAGE FORM, 1 DAY
     Route: 042
     Dates: start: 20090302, end: 20090616
  4. (METHYLPREDNISOLONE MERCK) [Suspect]
     Indication: PREMEDICATION
     Dosage: 1 DAY
     Route: 042
     Dates: start: 20090302, end: 20090616
  5. (ZOPHREN /00955301/) [Suspect]
     Indication: PREMEDICATION
     Route: 042
     Dates: start: 20090302, end: 20090616
  6. (RANIPLEX /00550801/) [Suspect]
     Indication: PREMEDICATION
     Dosage: 1 DF DOSAGE FORM, 1 DAY
     Route: 042
     Dates: start: 20090302, end: 20090616

REACTIONS (1)
  - Hair growth abnormal [None]
